FAERS Safety Report 8665440 (Version 2)
Quarter: 2013Q4

REPORT INFORMATION
  Report Type: Spontaneous
  Country: US (occurrence: US)
  Receive Date: 20120716
  Receipt Date: 20131101
  Transmission Date: 20140711
  Serious: No
  Sender: FDA-Public Use
  Company Number: US-009507513-1207USA000850

PATIENT
  Sex: Female

DRUGS (11)
  1. HYZAAR [Suspect]
     Route: 048
  2. DIOVAN [Concomitant]
  3. SYNTHROID [Concomitant]
  4. ADVIL [Concomitant]
  5. VITAMINS (UNSPECIFIED) [Concomitant]
  6. ALLEGRA [Concomitant]
  7. PROVENTIL [Concomitant]
     Route: 055
  8. CHONDROITIN [Concomitant]
  9. GLUCAMETACIN [Concomitant]
  10. OMEGA-3 [Concomitant]
  11. CALCIUM (UNSPECIFIED) [Concomitant]

REACTIONS (3)
  - Syncope [Unknown]
  - Hypertension [Unknown]
  - Drug intolerance [Unknown]
